FAERS Safety Report 8447456-5 (Version None)
Quarter: 2012Q2

REPORT INFORMATION
  Report Type: 
  Country: None (occurrence: None)
  Receive Date: 20120619
  Receipt Date: 20120618
  Transmission Date: 20120825
  Serious: Yes (Hospitalization)
  Sender: FDA-Public Use
  Company Number: IT-SANOFI-AVENTIS-2012SA037698

PATIENT
  Age: 88 Year
  Sex: Male

DRUGS (13)
  1. RANOLAZINE [Concomitant]
     Dosage: STRENGTH: 375 MG
  2. OMEPRAZOLE [Concomitant]
     Dosage: STRENGTH: 20MG
  3. CORDARONE [Suspect]
     Indication: ATRIAL FIBRILLATION
     Route: 048
     Dates: start: 20080113
  4. FERROUS SULFATE TAB [Concomitant]
  5. LASIX [Suspect]
     Route: 065
  6. ENALAPRIL MALEATE [Suspect]
     Dosage: STRENGTH: 5MG
     Route: 048
     Dates: start: 20101201, end: 20110113
  7. BISOPROLOL FUMARATE [Suspect]
     Dosage: STRENGTH:1.25MG
     Route: 048
     Dates: start: 20101201, end: 20110113
  8. LASIX [Suspect]
     Route: 048
     Dates: start: 20101201, end: 20110113
  9. BISOPROLOL FUMARATE [Suspect]
     Route: 065
  10. FOLINA [Concomitant]
  11. DEURSIL [Concomitant]
     Dosage: STRENGTH: 450MG
  12. COUMADIN [Concomitant]
  13. BENEXOL [Concomitant]

REACTIONS (2)
  - HYPOTHYROIDISM [None]
  - HYPOTENSION [None]
